FAERS Safety Report 14007160 (Version 1)
Quarter: 2017Q3

REPORT INFORMATION
  Report Type: Spontaneous
  Country: US (occurrence: US)
  Receive Date: 20170924
  Receipt Date: 20170924
  Transmission Date: 20171128
  Serious: No
  Sender: FDA-Public Use
  Company Number: None

PATIENT
  Age: 28 Year
  Sex: Female
  Weight: 78.75 kg

DRUGS (4)
  1. LILETTA [Concomitant]
     Active Substance: LEVONORGESTREL
  2. ALLEGRA [Concomitant]
     Active Substance: FEXOFENADINE HYDROCHLORIDE
  3. WELLNESS FORMULA [Concomitant]
  4. ACZONE [Suspect]
     Active Substance: DAPSONE
     Indication: ACNE
     Dosage: ?          QUANTITY:60 GRAMS;?
     Route: 061
     Dates: start: 20170718, end: 20170815

REACTIONS (4)
  - Drug hypersensitivity [None]
  - Lip swelling [None]
  - Lip pain [None]
  - Lip erythema [None]

NARRATIVE: CASE EVENT DATE: 20170814
